FAERS Safety Report 16099874 (Version 2)
Quarter: 2019Q1

REPORT INFORMATION
  Report Type: Spontaneous
  Country: DE (occurrence: DE)
  Receive Date: 20190321
  Receipt Date: 20190322
  Transmission Date: 20190418
  Serious: Yes (Hospitalization)
  Sender: FDA-Public Use
  Company Number: DE-ALLERGAN-1911919US

PATIENT
  Sex: Female

DRUGS (5)
  1. HYPNOREX [Interacting]
     Active Substance: LITHIUM CARBONATE
     Indication: BIPOLAR DISORDER
     Dosage: 1 G, QD
     Route: 065
  2. HYPNOREX [Interacting]
     Active Substance: LITHIUM CARBONATE
     Dosage: 1 G, QD
     Route: 065
  3. HYPNOREX [Interacting]
     Active Substance: LITHIUM CARBONATE
     Dosage: 0.6 G, QD
     Route: 065
  4. HYDROCHLOROTHIAZIDE UNK [Suspect]
     Active Substance: HYDROCHLOROTHIAZIDE
     Indication: HYPERTENSION
     Dosage: 12.5 MG, QD
     Route: 065
     Dates: start: 2012
  5. ENALAPRIL [Suspect]
     Active Substance: ENALAPRIL
     Indication: HYPERTENSION
     Dosage: 10 MG, QD
     Route: 065
     Dates: start: 2012

REACTIONS (4)
  - Labelled drug-drug interaction medication error [Unknown]
  - Depression [Recovering/Resolving]
  - Toxicity to various agents [Unknown]
  - Acute kidney injury [Unknown]
